FAERS Safety Report 4591994-2 (Version None)
Quarter: 2005Q1

REPORT INFORMATION
  Report Type: 
  Country: None (occurrence: None)
  Receive Date: 20050125
  Receipt Date: 20040924
  Transmission Date: 20050727
  Serious: No
  Sender: FDA-Public Use
  Company Number: USA040670501

PATIENT
  Age: 66 Year
  Sex: Female

DRUGS (3)
  1. FORTEO [Suspect]
     Indication: OSTEOPOROSIS
     Dates: start: 20040614
  2. FEMARA [Concomitant]
  3. CORTISONE [Concomitant]

REACTIONS (7)
  - ABNORMAL SENSATION IN EYE [None]
  - ARTHROPATHY [None]
  - ERYTHEMA [None]
  - EYE IRRITATION [None]
  - HEADACHE [None]
  - HOT FLUSH [None]
  - HYPERHIDROSIS [None]
